FAERS Safety Report 9415234 (Version 2)
Quarter: 2013Q3

REPORT INFORMATION
  Report Type: Report from Study
  Country: DE (occurrence: DE)
  Receive Date: 20130723
  Receipt Date: 20130731
  Transmission Date: 20140515
  Serious: Yes (Hospitalization, Other)
  Sender: FDA-Public Use
  Company Number: PHHY2013DE077558

PATIENT
  Sex: Female
  Weight: 87 kg

DRUGS (5)
  1. AFINITOR [Suspect]
     Indication: BREAST CANCER METASTATIC
     Dosage: 10 MG, QD
     Dates: start: 20130424, end: 20130516
  2. AFINITOR [Suspect]
     Dosage: 10 MG, QD
     Dates: start: 20130526, end: 20130528
  3. AFINITOR [Suspect]
     Dosage: 10 MG, QD
     Dates: start: 20130606
  4. EXEMESTANE [Concomitant]
     Indication: BREAST CANCER METASTATIC
     Dosage: 25 MG, QD
     Dates: start: 20130424
  5. DIURETICS [Concomitant]

REACTIONS (2)
  - C-reactive protein increased [Unknown]
  - Respiratory distress [Recovered/Resolved]
